FAERS Safety Report 9000579 (Version 3)
Quarter: 2013Q1

REPORT INFORMATION
  Report Type: Spontaneous
  Country: US (occurrence: US)
  Receive Date: 20130107
  Receipt Date: 20130225
  Transmission Date: 20140127
  Serious: Yes (Other)
  Sender: FDA-Public Use
  Company Number: US-PFIZER INC-2013003830

PATIENT
  Age: 53 Year
  Sex: Male
  Weight: 74.83 kg

DRUGS (5)
  1. CELEBREX [Suspect]
     Indication: ANKYLOSING SPONDYLITIS
     Dosage: 200 MG, 2X/DAY
     Route: 048
     Dates: start: 19970101
  2. METHADONE [Concomitant]
     Indication: ARTHRALGIA
     Dosage: UNK
  3. GABAPENTIN [Concomitant]
     Indication: ANKYLOSING SPONDYLITIS
     Dosage: UNK
  4. HYDROCODONE [Concomitant]
     Indication: ANKYLOSING SPONDYLITIS
     Dosage: UNK
  5. DIAZEPAM [Concomitant]
     Indication: ANXIETY
     Dosage: UNK

REACTIONS (2)
  - Myocardial infarction [Unknown]
  - Blood cholesterol increased [Unknown]
